FAERS Safety Report 22175198 (Version 1)
Quarter: 2023Q2

REPORT INFORMATION
  Report Type: Spontaneous
  Country: US (occurrence: None)
  Receive Date: 20230405
  Receipt Date: 20230405
  Transmission Date: 20230721
  Serious: No
  Sender: FDA-Public Use
  Company Number: 2023A059964

PATIENT
  Sex: Female
  Weight: 117 kg

DRUGS (4)
  1. BREZTRI [Suspect]
     Active Substance: BUDESONIDE\FORMOTEROL\GLYCOPYRROLATE
     Route: 055
  2. SYMBICORT [Suspect]
     Active Substance: BUDESONIDE\FORMOTEROL FUMARATE DIHYDRATE
     Route: 055
  3. FASENRA [Suspect]
     Active Substance: BENRALIZUMAB
     Route: 058
  4. DUPIXENT [Suspect]
     Active Substance: DUPILUMAB
     Indication: Asthma
     Dosage: EVERY OTHER WEEK
     Route: 058

REACTIONS (9)
  - Hypertension [Unknown]
  - Migraine [Unknown]
  - Groin pain [Unknown]
  - Dermatitis [Unknown]
  - Swelling [Unknown]
  - Pain [Unknown]
  - Erythema [Unknown]
  - Drug hypersensitivity [Unknown]
  - Off label use [Unknown]
